FAERS Safety Report 7462865-9 (Version None)
Quarter: 2011Q2

REPORT INFORMATION
  Report Type: 
  Country: None (occurrence: None)
  Receive Date: 20110506
  Receipt Date: 20110423
  Transmission Date: 20111010
  Serious: Yes (Other)
  Sender: FDA-Public Use
  Company Number: US-JNJFOC-20110412318

PATIENT
  Age: 50 Year
  Sex: Female

DRUGS (3)
  1. ROLAIDS [Suspect]
     Indication: GASTRITIS
     Dosage: 12-14 DAILY
     Route: 048
  2. PLAVIX [Concomitant]
     Indication: PRODUCT USED FOR UNKNOWN INDICATION
     Route: 065
  3. NEURONTIN [Concomitant]
     Indication: PRODUCT USED FOR UNKNOWN INDICATION
     Route: 065

REACTIONS (4)
  - DYSPHAGIA [None]
  - PRODUCT QUALITY ISSUE [None]
  - OFF LABEL USE [None]
  - GASTRITIS EROSIVE [None]
